FAERS Safety Report 7141580-5 (Version None)
Quarter: 2010Q4

REPORT INFORMATION
  Report Type: 
  Country: None (occurrence: None)
  Receive Date: 20101207
  Receipt Date: 20101124
  Transmission Date: 20110411
  Serious: Yes (Hospitalization)
  Sender: FDA-Public Use
  Company Number: US-ELI_LILLY_AND_COMPANY-US201010000391

PATIENT
  Sex: Female
  Weight: 45.578 kg

DRUGS (6)
  1. CYMBALTA [Suspect]
     Indication: DEPRESSION
     Dosage: 30 MG, DAILY (1/D)
  2. CYMBALTA [Suspect]
     Dosage: 60 MG, DAILY (1/D)
     Dates: start: 20100121
  3. WELLBUTRIN SR [Concomitant]
     Dosage: 150 D/F, DAILY (1/D)
  4. KLONOPIN [Concomitant]
     Dosage: 1 MG, EACH EVENING
  5. LEXAPRO [Concomitant]
  6. ABILIFY [Concomitant]
     Dosage: 2 MG, UNK

REACTIONS (10)
  - ARTHRALGIA [None]
  - ASTHENIA [None]
  - FEAR [None]
  - FEELING ABNORMAL [None]
  - GAIT DISTURBANCE [None]
  - HYPERHIDROSIS [None]
  - INFLUENZA LIKE ILLNESS [None]
  - LETHARGY [None]
  - MUSCULOSKELETAL PAIN [None]
  - PARAESTHESIA [None]
